FAERS Safety Report 7211161-3 (Version None)
Quarter: 2011Q1

REPORT INFORMATION
  Report Type: 
  Country: None (occurrence: None)
  Receive Date: 20110105
  Receipt Date: 20101206
  Transmission Date: 20110831
  Serious: Yes (Hospitalization, Other)
  Sender: FDA-Public Use
  Company Number: US-BAYER-201014294NA

PATIENT
  Sex: Female
  Weight: 84 kg

DRUGS (6)
  1. YASMIN [Suspect]
     Indication: ORAL CONTRACEPTION
  2. YASMIN [Suspect]
     Indication: PREMENSTRUAL SYNDROME
     Dosage: UNK
     Route: 048
     Dates: start: 20060731, end: 20080220
  3. HERBAL PREPARATION [Concomitant]
     Indication: WEIGHT DECREASED
     Dates: start: 20100220
  4. CETIRIZINE HCL [Concomitant]
     Indication: PRODUCT USED FOR UNKNOWN INDICATION
     Route: 048
  5. HERBAL PREPARATION [Concomitant]
     Dates: start: 20100220
  6. PROTOPIC [Concomitant]
     Indication: PRODUCT USED FOR UNKNOWN INDICATION
     Route: 065

REACTIONS (8)
  - ISCHAEMIC CEREBRAL INFARCTION [None]
  - VIITH NERVE PARALYSIS [None]
  - IMPETIGO [None]
  - CONVULSION [None]
  - DERMATITIS ATOPIC [None]
  - HYPOAESTHESIA [None]
  - APHASIA [None]
  - APRAXIA [None]
